FAERS Safety Report 11051261 (Version 4)
Quarter: 2015Q2

REPORT INFORMATION
  Report Type: Spontaneous
  Country: US (occurrence: US)
  Receive Date: 20150421
  Receipt Date: 20150604
  Transmission Date: 20150821
  Serious: No
  Sender: FDA-Public Use
  Company Number: US-PFIZER INC-2015128230

PATIENT
  Age: 55 Year
  Sex: Male
  Weight: 75 kg

DRUGS (1)
  1. SUTENT [Suspect]
     Active Substance: SUNITINIB MALATE
     Indication: RENAL CANCER METASTATIC
     Dosage: 50 MG, CYCLIC  (21 DAYS ON, 7 DAYS OFF),
     Dates: start: 20130410

REACTIONS (4)
  - Vitamin D decreased [Unknown]
  - Diarrhoea [Recovering/Resolving]
  - White blood cell count decreased [Unknown]
  - Back pain [Unknown]
